FAERS Safety Report 4839037-7 (Version None)
Quarter: 2005Q4

REPORT INFORMATION
  Report Type: 
  Country: None (occurrence: None)
  Receive Date: 20051024
  Receipt Date: 20050708
  Transmission Date: 20060501
  Serious: Yes (Other)
  Sender: FDA-Public Use
  Company Number: 215717

PATIENT
  Age: 72 Year
  Sex: Female

DRUGS (11)
  1. XOLAIR [Suspect]
     Indication: ASTHMA
     Dosage: 30 MG,Q4W
     Dates: start: 20040624
  2. ADVAIR (SALMETEROL XINAFOATE, FLUTICASONE PROPIONATE) [Concomitant]
  3. NASONEX [Concomitant]
  4. SINGULAIR [Concomitant]
  5. ZYRTEC [Concomitant]
  6. . [Concomitant]
  7. PRAVACHOL [Concomitant]
  8. NIACIN (NIACIN) [Concomitant]
  9. VITAMINS (VITAMINS NOS) [Concomitant]
  10. PREMARIN [Concomitant]
  11. ESTRACE [Concomitant]

REACTIONS (1)
  - BREAST CANCER [None]
